FAERS Safety Report 8452003-8 (Version None)
Quarter: 2012Q2

REPORT INFORMATION
  Report Type: 
  Country: None (occurrence: None)
  Receive Date: 20120620
  Receipt Date: 20120329
  Transmission Date: 20120825
  Serious: No
  Sender: FDA-Public Use
  Company Number: US-VERTEX PHARMACEUTICALS INC.-AE-2012-004499

PATIENT
  Sex: Male
  Weight: 24.925 kg

DRUGS (7)
  1. INCIVEK [Suspect]
     Route: 048
     Dates: start: 20111123
  2. RIBAVIRIN [Concomitant]
     Indication: HEPATITIS C
     Dates: start: 20110101, end: 20111116
  3. EPOETIN ALFA [Concomitant]
     Dates: start: 20111121, end: 20111220
  4. PEGASYS [Concomitant]
     Indication: HEPATITIS C
  5. RIBAVIRIN [Concomitant]
     Dates: start: 20111123
  6. EPOETIN ALFA [Concomitant]
     Dates: start: 20111220
  7. INCIVEK [Suspect]
     Indication: HEPATITIS C
     Route: 048
     Dates: start: 20111001, end: 20111116

REACTIONS (3)
  - OFF LABEL USE [None]
  - WEIGHT DECREASED [None]
  - ANAEMIA [None]
